FAERS Safety Report 8073155-8 (Version None)
Quarter: 2012Q1

REPORT INFORMATION
  Report Type: 
  Country: None (occurrence: None)
  Receive Date: 20120126
  Receipt Date: 20120116
  Transmission Date: 20120608
  Serious: Yes (Other)
  Sender: FDA-Public Use
  Company Number: FR-ELI_LILLY_AND_COMPANY-FR201201004332

PATIENT
  Age: 69 Year
  Sex: Female

DRUGS (1)
  1. FORTEO [Suspect]
     Indication: OSTEOPOROSIS
     Dosage: 20 UG, UNK
     Route: 058
     Dates: start: 20101101

REACTIONS (8)
  - HYPERTENSION [None]
  - VERTIGO [None]
  - TREMOR [None]
  - EYE HAEMORRHAGE [None]
  - PAIN [None]
  - TRACHEITIS [None]
  - PYREXIA [None]
  - FATIGUE [None]
